FAERS Safety Report 25886930 (Version 3)
Quarter: 2025Q4

REPORT INFORMATION
  Report Type: Spontaneous
  Country: MX (occurrence: MX)
  Receive Date: 20251006
  Receipt Date: 20251014
  Transmission Date: 20260118
  Serious: Yes (Hospitalization, Other)
  Sender: BIOMARIN
  Company Number: MX-BIOMARINAP-MX-2025-169149

PATIENT
  Age: 6 Year
  Sex: Female
  Weight: 14.9 kg

DRUGS (1)
  1. VIMIZIM [Suspect]
     Active Substance: ELOSULFASE ALFA
     Indication: Mucopolysaccharidosis IV
     Dosage: 30 MILLIGRAM, QW
     Dates: start: 20230911

REACTIONS (3)
  - Foot deformity [Recovering/Resolving]
  - Body height decreased [Unknown]
  - Incision site discomfort [Recovering/Resolving]
